FAERS Safety Report 5491056-6 (Version None)
Quarter: 2007Q4

REPORT INFORMATION
  Report Type: 
  Country: None (occurrence: None)
  Receive Date: 20071019
  Receipt Date: 20071009
  Transmission Date: 20080405
  Serious: Yes (Other)
  Sender: FDA-Public Use
  Company Number: US-PFIZER INC-2007084210

PATIENT
  Sex: Male
  Weight: 89.4 kg

DRUGS (7)
  1. LIPITOR [Suspect]
     Indication: MYOCARDIAL INFARCTION
     Dates: start: 20040801, end: 20070901
  2. LIPITOR [Suspect]
     Indication: ANGIOPLASTY
  3. ALL OTHER THERAPEUTIC PRODUCTS [Concomitant]
  4. PROTONIX [Concomitant]
  5. ACETYLSALICYLIC ACID [Concomitant]
  6. PLAVIX [Concomitant]
  7. LISINOPRIL [Concomitant]

REACTIONS (4)
  - ARTHRALGIA [None]
  - HEPATIC NEOPLASM [None]
  - PAIN IN EXTREMITY [None]
  - RENAL NEOPLASM [None]
